FAERS Safety Report 14165723 (Version 2)
Quarter: 2017Q4

REPORT INFORMATION
  Report Type: Report from Study
  Country: US (occurrence: US)
  Receive Date: 20171107
  Receipt Date: 20171109
  Transmission Date: 20180321
  Serious: Yes (Hospitalization)
  Sender: FDA-Public Use
  Company Number: US-009507513-1702USA003057

PATIENT
  Age: 69 Year
  Sex: Female
  Weight: 95.7 kg

DRUGS (14)
  1. LOPERAMIDE [Concomitant]
     Active Substance: LOPERAMIDE
     Indication: DIARRHOEA
     Dosage: TOTAL DAILY DOSE: 2 MG, PRN
     Route: 048
     Dates: start: 195001
  2. PEMBROLIZUMAB. [Suspect]
     Active Substance: PEMBROLIZUMAB
     Dosage: 200 MG, Q3W
     Route: 042
     Dates: start: 20170227
  3. METOLAZONE. [Concomitant]
     Active Substance: METOLAZONE
     Indication: OEDEMA
     Dosage: 2.5 MG, QD
     Route: 048
     Dates: start: 198001
  4. K-DUR [Concomitant]
     Active Substance: POTASSIUM CHLORIDE
     Indication: HYPOKALAEMIA
     Dosage: 60 MEQ, ONCE
     Route: 048
     Dates: start: 20160821, end: 20170821
  5. PEMBROLIZUMAB. [Suspect]
     Active Substance: PEMBROLIZUMAB
     Indication: ANAL SQUAMOUS CELL CARCINOMA
     Dosage: 200 MG, Q3W
     Route: 042
     Dates: start: 20160802, end: 20161227
  6. DOCUSATE CALCIUM. [Concomitant]
     Active Substance: DOCUSATE CALCIUM
     Indication: CONSTIPATION
     Dosage: TOTAL DAILY DOSE: 240 MG, PRN
     Route: 048
     Dates: start: 197601
  7. LIDOCAINE (+) PRILOCAINE [Concomitant]
     Indication: PAIN PROPHYLAXIS
     Dosage: 2.5% DAILY, PRN
     Route: 061
     Dates: start: 20161024
  8. ACETAMINOPHEN. [Concomitant]
     Active Substance: ACETAMINOPHEN
     Indication: PAIN
     Dosage: TOTAL DAILY DOSE: 500 MG
     Route: 048
     Dates: start: 196901
  9. AMIODARONE [Concomitant]
     Active Substance: AMIODARONE
     Indication: ARRHYTHMIA PROPHYLAXIS
     Dosage: 200 MG, QD
     Route: 048
     Dates: start: 196001
  10. PEMBROLIZUMAB. [Suspect]
     Active Substance: PEMBROLIZUMAB
     Dosage: 200 MG, Q3W
     Route: 042
     Dates: start: 20170116, end: 20170116
  11. FUROSEMIDE. [Concomitant]
     Active Substance: FUROSEMIDE
     Indication: OEDEMA
     Dosage: 40 MG, QD
     Route: 048
     Dates: start: 197001
  12. POTASSIUM CHLORIDE. [Concomitant]
     Active Substance: POTASSIUM CHLORIDE
     Indication: MINERAL SUPPLEMENTATION
     Dosage: 80 MEQ, QD, FORMULATION: PILL
     Route: 048
     Dates: start: 198001
  13. ASPIRIN. [Concomitant]
     Active Substance: ASPIRIN
     Indication: PAIN
     Dosage: 325MG DAILY, PRN
     Route: 048
     Dates: start: 20161205
  14. METOPROLOL. [Concomitant]
     Active Substance: METOPROLOL
     Indication: CARDIAC FAILURE CONGESTIVE
     Dosage: 25 MG, QD
     Route: 048
     Dates: start: 198001

REACTIONS (1)
  - Secondary adrenocortical insufficiency [Recovered/Resolved]

NARRATIVE: CASE EVENT DATE: 20170206
